FAERS Safety Report 21404084 (Version 1)
Quarter: 2022Q4

REPORT INFORMATION
  Report Type: Spontaneous
  Country: US (occurrence: None)
  Receive Date: 20221003
  Receipt Date: 20221003
  Transmission Date: 20230113
  Serious: No
  Sender: FDA-Public Use
  Company Number: None

PATIENT
  Sex: Female

DRUGS (1)
  1. DROSPIRENONE, ETHINYL ESTRADIOL AND LEVOMEFOLATE CALCIUM [Suspect]
     Active Substance: DROSPIRENONE\ETHINYL ESTRADIOL\LEVOMEFOLATE CALCIUM

REACTIONS (7)
  - Product substitution issue [None]
  - Therapeutic response changed [None]
  - Weight increased [None]
  - Acne [None]
  - Frustration tolerance decreased [None]
  - Depression [None]
  - Emotional distress [None]
